FAERS Safety Report 5158470-X (Version None)
Quarter: 2006Q4

REPORT INFORMATION
  Report Type: 
  Country: None (occurrence: None)
  Receive Date: 20061128
  Receipt Date: 20061102
  Transmission Date: 20070319
  Serious: Yes (Other)
  Sender: FDA-Public Use
  Company Number: PHEH2006US13726

PATIENT
  Age: 50 Year
  Sex: Female

DRUGS (2)
  1. ELIDEL [Suspect]
     Indication: ECZEMA
     Dosage: UNK, BID
     Route: 061
     Dates: start: 20031101
  2. BENICAR [Concomitant]
     Indication: HYPERTENSION

REACTIONS (1)
  - THYROIDECTOMY [None]
